FAERS Safety Report 6093643-3 (Version None)
Quarter: 2009Q1

REPORT INFORMATION
  Report Type: 
  Country: None (occurrence: None)
  Receive Date: 20090219
  Receipt Date: 20081023
  Transmission Date: 20090719
  Serious: No
  Sender: FDA-Public Use
  Company Number: WAES 0810USA04497

PATIENT
  Sex: Female
  Weight: 89.3586 kg

DRUGS (18)
  1. JANUVIA [Suspect]
     Indication: DIABETES MELLITUS
     Dosage: 100 MG/DAILY/PO
     Route: 048
     Dates: start: 20080618, end: 20080621
  2. JANUVIA [Suspect]
     Indication: DIABETES MELLITUS
     Dosage: 50 MG/DAILY/PO
     Route: 048
     Dates: start: 20080621
  3. ACTOS [Concomitant]
  4. ASMANEX TWISTHALER [Concomitant]
  5. CYMBALTA [Concomitant]
  6. FERRUM [Concomitant]
  7. HUMALOG [Concomitant]
  8. LANTUS [Concomitant]
  9. LEXAPRO [Concomitant]
  10. PHENERGN (PROMETHAZINE HYDROCHL [Concomitant]
  11. PREVACID [Concomitant]
  12. PROVENTIL-HFA [Concomitant]
  13. REGLAN [Concomitant]
  14. REQUIP [Concomitant]
  15. RHINOCORT [Concomitant]
  16. VICODIN [Concomitant]
  17. ZOFRAN [Concomitant]
  18. ZYRTEC [Concomitant]

REACTIONS (1)
  - FAECALOMA [None]
